FAERS Safety Report 8368895-7 (Version None)
Quarter: 2012Q2

REPORT INFORMATION
  Report Type: 
  Country: None (occurrence: None)
  Receive Date: 20120516
  Receipt Date: 20120502
  Transmission Date: 20120825
  Serious: Yes (Life-Threatening, Hospitalization, Other)
  Sender: FDA-Public Use
  Company Number: SAN_00074_2012

PATIENT
  Age: 83 Year
  Sex: Female

DRUGS (3)
  1. METFORMIN HCL [Suspect]
     Indication: DIABETES MELLITUS
     Dosage: (1000 MG TID)
  2. ASPIRIN [Concomitant]
  3. IRBESARTAN HCT [Concomitant]

REACTIONS (16)
  - CONFUSIONAL STATE [None]
  - CONTINUOUS HAEMODIAFILTRATION [None]
  - DISORIENTATION [None]
  - BLOOD PRESSURE DECREASED [None]
  - DYSPNOEA [None]
  - PROTHROMBIN LEVEL DECREASED [None]
  - PNEUMONIA [None]
  - DIARRHOEA [None]
  - RESPIRATORY RATE INCREASED [None]
  - DEHYDRATION [None]
  - HEART RATE INCREASED [None]
  - BODY TEMPERATURE DECREASED [None]
  - LACTIC ACIDOSIS [None]
  - RENAL FAILURE ACUTE [None]
  - ACUTE RESPIRATORY DISTRESS SYNDROME [None]
  - COLD SWEAT [None]
